FAERS Safety Report 22055295 (Version 1)
Quarter: 2023Q1

REPORT INFORMATION
  Report Type: Report from Study
  Country: US (occurrence: US)
  Receive Date: 20230302
  Receipt Date: 20230302
  Transmission Date: 20230417
  Serious: Yes (Other)
  Sender: FDA-Public Use
  Company Number: US-JNJFOC-20230257453

PATIENT
  Sex: Female

DRUGS (1)
  1. REMICADE [Suspect]
     Active Substance: INFLIXIMAB
     Indication: Crohn^s disease
     Dosage: 10 (UNITS UNSPECIFIED)
     Route: 041

REACTIONS (4)
  - Colectomy [Unknown]
  - Alopecia [Unknown]
  - Abdominal pain upper [Unknown]
  - Blister [Unknown]
